FAERS Safety Report 7903563-4 (Version None)
Quarter: 2011Q4

REPORT INFORMATION
  Report Type: 
  Country: None (occurrence: None)
  Receive Date: 20111109
  Receipt Date: 20111109
  Transmission Date: 20120403
  Serious: Yes (Hospitalization)
  Sender: FDA-Public Use
  Company Number: None

PATIENT
  Age: 55 Year
  Sex: Male
  Weight: 166 kg

DRUGS (4)
  1. PRADAXA [Suspect]
     Indication: ATRIAL FLUTTER
     Dosage: 150MG
     Route: 048
     Dates: start: 20111024, end: 20111106
  2. PRADAXA [Suspect]
     Indication: ATRIAL FIBRILLATION
     Dosage: 150MG
     Route: 048
     Dates: start: 20111024, end: 20111106
  3. PRILOSEC [Concomitant]
  4. NEXIUM [Concomitant]

REACTIONS (3)
  - RECTAL HAEMORRHAGE [None]
  - FAECES DISCOLOURED [None]
  - HAEMATEMESIS [None]
